FAERS Safety Report 4752030-8 (Version None)
Quarter: 2005Q3

REPORT INFORMATION
  Report Type: 
  Country: None (occurrence: None)
  Receive Date: 20050822
  Receipt Date: 20050607
  Transmission Date: 20060218
  Serious: No
  Sender: FDA-Public Use
  Company Number: PHEH2005US07580

PATIENT
  Age: 77 Year
  Sex: Female

DRUGS (4)
  1. ZELNORM [Suspect]
     Indication: CONSTIPATION
     Dosage: 6 MG, BID, ORAL
     Route: 048
     Dates: start: 20050618
  2. NEXIUM [Concomitant]
  3. ZANTAC [Concomitant]
  4. STOOL SOFTENER (DOCUSATE SODIUM) [Concomitant]

REACTIONS (3)
  - CONSTIPATION [None]
  - EAR PAIN [None]
  - INSOMNIA [None]
